FAERS Safety Report 17692052 (Version 1)
Quarter: 2020Q2

REPORT INFORMATION
  Report Type: Spontaneous
  Country: FR (occurrence: FR)
  Receive Date: 20200422
  Receipt Date: 20200422
  Transmission Date: 20200714
  Serious: Yes (Hospitalization, Other)
  Sender: FDA-Public Use
  Company Number: FR-MYLANLABS-2020M1038899

PATIENT
  Age: 30 Year
  Sex: Male

DRUGS (1)
  1. AMIODARONE [Suspect]
     Active Substance: AMIODARONE
     Indication: PRODUCT USED FOR UNKNOWN INDICATION
     Dosage: 10800 MILLIGRAM, QD
     Route: 048
     Dates: start: 20120716, end: 20120716

REACTIONS (5)
  - Metabolic disorder [Recovered/Resolved]
  - Atrioventricular block complete [Recovered/Resolved]
  - Disturbance in attention [Recovered/Resolved]
  - Suicide attempt [Unknown]
  - Hypotension [Recovered/Resolved]

NARRATIVE: CASE EVENT DATE: 20120716
